FAERS Safety Report 12248450 (Version 1)
Quarter: 2016Q2

REPORT INFORMATION
  Report Type: Spontaneous
  Country: US (occurrence: US)
  Receive Date: 20160408
  Receipt Date: 20160408
  Transmission Date: 20160815
  Serious: No
  Sender: FDA-Public Use
  Company Number: US-BAYER-2016-067640

PATIENT
  Age: 82 Year
  Sex: Female
  Weight: 58.96 kg

DRUGS (8)
  1. TUMS [CALCIUM CARBONATE,MAGNESIUM CARBONATE,MAGNESIUM TRISILICATE] [Concomitant]
  2. TEMAZEPAM. [Concomitant]
     Active Substance: TEMAZEPAM
  3. MIRALAX [Suspect]
     Active Substance: POLYETHYLENE GLYCOL 3350
     Indication: CONSTIPATION
     Dosage: UNK
     Route: 048
     Dates: start: 2013
  4. PHILLIPS^ LIQUID GELS STOOL SOFTENER [Concomitant]
     Active Substance: DOCUSATE SODIUM
     Dosage: UNK UNK, QD
  5. VITAMIN B12 [Concomitant]
     Active Substance: CYANOCOBALAMIN
  6. BENEFIBER [Concomitant]
     Active Substance: STARCH, WHEAT
  7. COD LIVER OIL [Concomitant]
     Active Substance: COD LIVER OIL
  8. VITAMIN D [Concomitant]
     Active Substance: CHOLECALCIFEROL

REACTIONS (2)
  - Weight decreased [None]
  - Product use issue [None]
